FAERS Safety Report 6647929-1 (Version None)
Quarter: 2010Q1

REPORT INFORMATION
  Report Type: 
  Country: None (occurrence: None)
  Receive Date: 20100318
  Receipt Date: 20100311
  Transmission Date: 20100710
  Serious: Yes (Other)
  Sender: FDA-Public Use
  Company Number: 2010SP015544

PATIENT
  Age: 4 Year
  Sex: Male

DRUGS (3)
  1. DESLORATADINE [Suspect]
     Indication: RHINITIS ALLERGIC
     Dosage: QD
     Dates: start: 20090801, end: 20100312
  2. SINGULAIR [Suspect]
     Indication: RHINITIS ALLERGIC
     Dosage: 1 DF;QD
     Dates: start: 20090801, end: 20100312
  3. CLARIPEN (CLARITHROMYCIN) [Suspect]
     Indication: INFECTION
     Dates: start: 20100201

REACTIONS (4)
  - AGGRESSION [None]
  - PETIT MAL EPILEPSY [None]
  - PYREXIA [None]
  - STRESS [None]
